FAERS Safety Report 21070151 (Version 1)
Quarter: 2022Q3

REPORT INFORMATION
  Report Type: Spontaneous
  Country: KP (occurrence: US)
  Receive Date: 20220712
  Receipt Date: 20220712
  Transmission Date: 20221027
  Serious: Yes (Hospitalization, Other)
  Sender: FDA-Public Use
  Company Number: KP-TARO PHARMACEUTICALS USA INC.-2022TAR00893

PATIENT
  Age: 72 Year
  Sex: Male
  Weight: 82 kg

DRUGS (11)
  1. DESOXIMETASONE [Suspect]
     Active Substance: DESOXIMETASONE
     Indication: Skin lesion
     Dosage: 30 G, AS NEEDED
     Route: 065
     Dates: start: 20211027
  2. SASANLIMAB [Suspect]
     Active Substance: SASANLIMAB
     Indication: Bladder transitional cell carcinoma
     Dosage: 300 MILLIGRAM, 1DOSE/4WEEKS
     Route: 058
     Dates: start: 20210804, end: 20220316
  3. BCG VACCINE [Suspect]
     Active Substance: BCG VACCINE
     Indication: Bladder transitional cell carcinoma
     Dosage: 50 ML, PER PROTOCOL ARM A
     Route: 043
     Dates: start: 20210804
  4. NICERGOLINE [Concomitant]
     Active Substance: NICERGOLINE
     Indication: Product used for unknown indication
     Dosage: UNK
     Route: 048
     Dates: start: 2000
  5. ROVELITO [Concomitant]
     Indication: Product used for unknown indication
     Dosage: UNK
     Route: 048
     Dates: start: 2000
  6. ASPIRIN [Concomitant]
     Active Substance: ASPIRIN
     Indication: Product used for unknown indication
     Dosage: UNK
     Route: 048
     Dates: start: 2000
  7. REBAMIPIDE [Concomitant]
     Active Substance: REBAMIPIDE
     Indication: Product used for unknown indication
     Dosage: UNK
     Route: 048
     Dates: start: 2000
  8. URONAL SR [Concomitant]
     Indication: Product used for unknown indication
     Dosage: UNK
     Route: 048
     Dates: start: 2000
  9. ADIPAM [Concomitant]
     Indication: Product used for unknown indication
     Dosage: UNK
     Route: 048
     Dates: start: 20220413
  10. ALLEGRA [Concomitant]
     Active Substance: FEXOFENADINE HYDROCHLORIDE
     Indication: Product used for unknown indication
     Dosage: UNK
     Route: 048
     Dates: start: 20220413
  11. TWOLION [Concomitant]
     Indication: Product used for unknown indication
     Dosage: UNK
     Route: 048
     Dates: start: 20211027

REACTIONS (1)
  - Toxic epidermal necrolysis [Recovered/Resolved]

NARRATIVE: CASE EVENT DATE: 20220427
